FAERS Safety Report 9377280 (Version 1)
Quarter: 2013Q3

REPORT INFORMATION
  Report Type: Spontaneous
  Country: US (occurrence: US)
  Receive Date: 20130701
  Receipt Date: 20130701
  Transmission Date: 20140515
  Serious: Yes (Other)
  Sender: FDA-Public Use
  Company Number: US-ASTELLAS-2013US006735

PATIENT
  Age: 85 Year
  Sex: Female

DRUGS (1)
  1. MYRBETRIQ [Suspect]
     Indication: PRODUCT USED FOR UNKNOWN INDICATION
     Dosage: 25 MG, UNKNOWN/D
     Route: 048
     Dates: start: 20130619

REACTIONS (6)
  - Swollen tongue [Unknown]
  - Dyspnoea [Unknown]
  - Dysphagia [Unknown]
  - Gastric ulcer [Unknown]
  - Decreased appetite [Unknown]
  - Abdominal pain upper [Unknown]
